FAERS Safety Report 8552806-5 (Version None)
Quarter: 2012Q3

REPORT INFORMATION
  Report Type: 
  Country: None (occurrence: None)
  Receive Date: 20120731
  Receipt Date: 20120725
  Transmission Date: 20120928
  Serious: Yes (Hospitalization)
  Sender: FDA-Public Use
  Company Number: PHHY2012CA065349

PATIENT
  Sex: Male

DRUGS (2)
  1. GLEEVEC [Suspect]
     Dosage: 600 MG, DAILY
     Route: 048
     Dates: start: 20120601
  2. GLEEVEC [Suspect]
     Dosage: UNK
     Dates: start: 20120722

REACTIONS (4)
  - VOMITING [None]
  - DYSGEUSIA [None]
  - PAROSMIA [None]
  - DIZZINESS [None]
